FAERS Safety Report 18100967 (Version 2)
Quarter: 2020Q3

REPORT INFORMATION
  Report Type: Report from Study
  Country: US (occurrence: US)
  Receive Date: 20200731
  Receipt Date: 20200819
  Transmission Date: 20201103
  Serious: Yes (Hospitalization)
  Sender: FDA-Public Use
  Company Number: US-ACTELION-A-NJ2019-198437

PATIENT
  Age: 65 Year
  Sex: Female
  Weight: 101.59 kg

DRUGS (33)
  1. ASPIRIN. [Concomitant]
     Active Substance: ASPIRIN
     Dosage: 81 MG, QD
     Route: 048
  2. DALIRESP [Concomitant]
     Active Substance: ROFLUMILAST
     Dosage: 500 MCG, QD
     Route: 048
  3. DOXYCYCLINE. [Concomitant]
     Active Substance: DOXYCYCLINE
  4. LATANOPROST. [Concomitant]
     Active Substance: LATANOPROST
     Dosage: 1 DROP, QD
     Route: 047
  5. MAPAP [Concomitant]
     Active Substance: ACETAMINOPHEN
     Dosage: 500 MG, EVERY 6 HRS PRN
     Route: 048
  6. MULTIVITAMINUM [Concomitant]
     Active Substance: VITAMINS
     Dosage: 1 UNK, QD W FOOD
     Route: 048
  7. ORENITRAM [Concomitant]
     Active Substance: TREPROSTINIL
     Dosage: 125 MCG, TID
     Route: 048
  8. SERTRALINE [Concomitant]
     Active Substance: SERTRALINE HYDROCHLORIDE
     Dosage: 50 MG, QD
     Route: 048
  9. BUMETANIDE. [Concomitant]
     Active Substance: BUMETANIDE
     Dosage: 2 MG, BID
     Route: 048
  10. LOPERAMIDE [Concomitant]
     Active Substance: LOPERAMIDE
     Dosage: 2 MG, PRN
     Route: 048
  11. MONTELUKAST [Concomitant]
     Active Substance: MONTELUKAST SODIUM
     Dosage: 10 MG, QD IN EVENING
     Route: 048
  12. PROAIR HFA [Concomitant]
     Active Substance: ALBUTEROL SULFATE
     Indication: WHEEZING
     Dosage: 2 PUFF EVERY 4?6 HRS PRN
     Route: 055
  13. SILDENAFIL. [Concomitant]
     Active Substance: SILDENAFIL
     Dosage: 20 MG, TID
     Route: 048
  14. ADEMPAS [Concomitant]
     Active Substance: RIOCIGUAT
  15. ALBUTEROL SULFATE. [Concomitant]
     Active Substance: ALBUTEROL SULFATE
     Dosage: 5 MG/ML, QID
     Route: 055
  16. ATORVASTATIN [Concomitant]
     Active Substance: ATORVASTATIN
     Dosage: 40 MG, QD
     Route: 048
  17. BENAZEPRIL [Concomitant]
     Active Substance: BENAZEPRIL HYDROCHLORIDE
     Dosage: 10 MG, BID
     Route: 048
  18. CLARITINE [Concomitant]
     Active Substance: LORATADINE
  19. OPSUMIT [Suspect]
     Active Substance: MACITENTAN
     Indication: PULMONARY ARTERIAL HYPERTENSION
     Dosage: 10 MG, QD
     Route: 048
     Dates: start: 20191010
  20. XARELTO [Suspect]
     Active Substance: RIVAROXABAN
     Indication: PULMONARY EMBOLISM
     Dosage: UNK
     Route: 065
     Dates: start: 20180129
  21. CETIRIZINE [Concomitant]
     Active Substance: CETIRIZINE HYDROCHLORIDE
     Dosage: 10 MG, QD
     Route: 048
  22. LEVAQUIN [Concomitant]
     Active Substance: LEVOFLOXACIN
  23. OXYGEN. [Concomitant]
     Active Substance: OXYGEN
     Dosage: 4L AT REST; 6L WITH ACTIVITY, PER MIN
  24. POTASSIUM CHLORIDE. [Concomitant]
     Active Substance: POTASSIUM CHLORIDE
     Dosage: 10 MEQ, BID W FOOD
     Route: 048
  25. SPIRONOLACTONE. [Concomitant]
     Active Substance: SPIRONOLACTONE
     Dosage: 25 MG
  26. ALPHAGAN P [Concomitant]
     Active Substance: BRIMONIDINE TARTRATE
     Dosage: 1 DROP, BID
  27. DOCUSATE SODIUM. [Concomitant]
     Active Substance: DOCUSATE SODIUM
     Dosage: 100 MG, EVERY DAY AT BEDTIME PRN
  28. FLONASE [Concomitant]
     Active Substance: FLUTICASONE PROPIONATE
     Dosage: 2 SPRAY, QD
     Route: 045
  29. PANTOPRAZOLE [Concomitant]
     Active Substance: PANTOPRAZOLE
     Dosage: 40 MG, QD
     Route: 048
  30. BUSPIRONE HCL [Concomitant]
     Active Substance: BUSPIRONE HYDROCHLORIDE
     Dosage: 5 MG, BID
     Route: 048
  31. DULERA [Concomitant]
     Active Substance: FORMOTEROL FUMARATE DIHYDRATE\MOMETASONE FUROATE
     Dosage: 1 PUFF, BID
     Route: 055
  32. ELIQUIS [Concomitant]
     Active Substance: APIXABAN
     Dosage: 5 MG, BID
     Route: 048
  33. GABAPENTIN. [Concomitant]
     Active Substance: GABAPENTIN
     Dosage: 900 MG MORNING AND BEDTIME 600 MG NOON

REACTIONS (27)
  - Dyspnoea exertional [Recovering/Resolving]
  - Pain [Unknown]
  - Blood pressure increased [Unknown]
  - Right ventricular dysfunction [Unknown]
  - Dizziness [Unknown]
  - Chest discomfort [Not Recovered/Not Resolved]
  - Oxygen saturation decreased [Unknown]
  - Cardiac murmur [Unknown]
  - Dyspnoea [Unknown]
  - Syncope [Unknown]
  - Tricuspid valve incompetence [Unknown]
  - Emphysema [Unknown]
  - Cor pulmonale [Unknown]
  - Pulmonary embolism [Unknown]
  - Pneumonitis [Unknown]
  - Oedema peripheral [Unknown]
  - Depressed mood [Unknown]
  - Palpitations [Unknown]
  - Left atrial dilatation [Unknown]
  - Pulmonary hypertension [Unknown]
  - Rectal haemorrhage [Unknown]
  - Fatigue [Unknown]
  - Dependence on oxygen therapy [Unknown]
  - Malaise [Unknown]
  - Dyspnoea at rest [Recovering/Resolving]
  - Pneumonia [Recovered/Resolved]
  - Right ventricular dilatation [Unknown]

NARRATIVE: CASE EVENT DATE: 20191022
